FAERS Safety Report 9597191 (Version 1)
Quarter: 2013Q4

REPORT INFORMATION
  Report Type: Spontaneous
  Country: US (occurrence: US)
  Receive Date: 20131004
  Receipt Date: 20131004
  Transmission Date: 20140711
  Serious: No
  Sender: FDA-Public Use
  Company Number: US-AMGEN-USASP2013017795

PATIENT
  Age: 59 Year
  Sex: Male
  Weight: 99.77 kg

DRUGS (12)
  1. ENBREL [Suspect]
     Indication: RHEUMATOID ARTHRITIS
     Dosage: 50 MG, QWK
     Route: 058
  2. ENALAPRIL [Concomitant]
     Dosage: 10 MG, UNK
  3. FOLIC ACID [Concomitant]
     Dosage: UNK
  4. PREDNISONE [Concomitant]
     Dosage: 1 MG, UNK
  5. METHOTREXATE [Concomitant]
     Dosage: 2.5 MG, UNK
  6. VITAMIN D                          /00107901/ [Concomitant]
     Dosage: 400 UNIT, UNK
  7. SAW PALMETTO                       /00833501/ [Concomitant]
     Dosage: UNK
  8. CALCIUM D                          /00944201/ [Concomitant]
     Dosage: UNK
  9. FISH OIL [Concomitant]
     Dosage: UNK
  10. TYLENOL                            /00020001/ [Concomitant]
     Dosage: 500 MG, UNK
  11. ASA [Concomitant]
     Dosage: LOW DOSE 81 MG, EC
  12. BC FAST PAIN RELIEF [Concomitant]
     Dosage: UNK

REACTIONS (1)
  - Nausea [Unknown]
